FAERS Safety Report 8123482-0 (Version None)
Quarter: 2012Q1

REPORT INFORMATION
  Report Type: 
  Country: None (occurrence: None)
  Receive Date: 20120208
  Receipt Date: 20120131
  Transmission Date: 20120608
  Serious: Yes (Hospitalization, Other)
  Sender: FDA-Public Use
  Company Number: PHHY2012DE008734

PATIENT
  Sex: Male

DRUGS (3)
  1. AFINITOR [Suspect]
     Indication: NEUROENDOCRINE CARCINOMA
     Dosage: 10 MG, PER DAY
     Route: 048
     Dates: start: 20111227, end: 20120101
  2. BISOPROLOL [Concomitant]
     Dosage: UNK UKN, UNK
     Route: 048
  3. LOPERAMIDE HCL [Concomitant]
     Indication: DIARRHOEA
     Dosage: UNK UKN, UNK
     Route: 048
     Dates: start: 20110101, end: 20120101

REACTIONS (5)
  - NEOPLASM PROGRESSION [None]
  - NEOPLASM MALIGNANT [None]
  - MUSCULAR WEAKNESS [None]
  - HAEMATURIA [None]
  - BLADDER OBSTRUCTION [None]
